FAERS Safety Report 6073929-9 (Version None)
Quarter: 2009Q1

REPORT INFORMATION
  Report Type: 
  Country: None (occurrence: None)
  Receive Date: 20090211
  Receipt Date: 20090204
  Transmission Date: 20090719
  Serious: Yes (Other)
  Sender: FDA-Public Use
  Company Number: GB-ASTRAZENECA-2009GB00410

PATIENT
  Age: 50 Year
  Sex: Female

DRUGS (4)
  1. ZESTORETIC [Suspect]
     Route: 048
     Dates: start: 20010214, end: 20090106
  2. EMCOR [Concomitant]
     Dosage: 5 MG
  3. ANXICALM [Concomitant]
  4. BURINEX [Concomitant]
     Dosage: 5 MG

REACTIONS (1)
  - IMMUNOGLOBULINS INCREASED [None]
